FAERS Safety Report 6204127-3 (Version None)
Quarter: 2009Q2

REPORT INFORMATION
  Report Type: 
  Country: None (occurrence: None)
  Receive Date: 20090521
  Receipt Date: 20090508
  Transmission Date: 20091009
  Serious: No
  Sender: FDA-Public Use
  Company Number: SPI200900158

PATIENT
  Age: 25 Year
  Sex: Female
  Weight: 53.5 kg

DRUGS (3)
  1. AMITIZA [Suspect]
     Indication: IRRITABLE BOWEL SYNDROME
     Dosage: 24 MCG, BID, ORAL ; 8 MCG, BID, ORAL
     Route: 048
     Dates: start: 20080101, end: 20080101
  2. AMITIZA [Suspect]
     Indication: IRRITABLE BOWEL SYNDROME
     Dosage: 24 MCG, BID, ORAL ; 8 MCG, BID, ORAL
     Route: 048
     Dates: start: 20090401
  3. LOESTRIN 1.5/30 [Concomitant]

REACTIONS (3)
  - DYSPNOEA [None]
  - NAUSEA [None]
  - VOMITING [None]
